FAERS Safety Report 12061032 (Version 1)
Quarter: 2016Q1

REPORT INFORMATION
  Report Type: Spontaneous
  Country: JP (occurrence: JP)
  Receive Date: 20160210
  Receipt Date: 20160210
  Transmission Date: 20160526
  Serious: Yes (Hospitalization)
  Sender: FDA-Public Use
  Company Number: PHBS1996JP04839

PATIENT
  Age: 4 Year
  Sex: Male
  Weight: 17 kg

DRUGS (3)
  1. VOLTAREN [Suspect]
     Active Substance: DICLOFENAC SODIUM
     Route: 054
     Dates: start: 19951129, end: 19951130
  2. DIAZEPAM. [Concomitant]
     Active Substance: DIAZEPAM
     Route: 054
     Dates: start: 19951129, end: 19951130
  3. VOLTAREN [Suspect]
     Active Substance: DICLOFENAC SODIUM
     Dates: start: 19951129, end: 19951130

REACTIONS (4)
  - Hypothermia [Recovered/Resolved]
  - Depressed level of consciousness [Recovered/Resolved]
  - Dizziness [Recovered/Resolved]
  - Altered state of consciousness [Recovered/Resolved]

NARRATIVE: CASE EVENT DATE: 19951130
